FAERS Safety Report 5598302-9 (Version None)
Quarter: 2008Q1

REPORT INFORMATION
  Report Type: 
  Country: None (occurrence: None)
  Receive Date: 20080116
  Receipt Date: 20080109
  Transmission Date: 20080703
  Serious: Yes (Hospitalization)
  Sender: FDA-Public Use
  Company Number: A-US2008-19096

PATIENT
  Age: 30 Year
  Sex: Female

DRUGS (2)
  1. TRACLEER [Suspect]
     Indication: PULMONARY HYPERTENSION
     Dosage: ORAL
     Route: 048
     Dates: start: 20060510, end: 20071219
  2. ACETAMINOPHEN [Suspect]

REACTIONS (2)
  - DRUG ABUSER [None]
  - LIVER FUNCTION TEST ABNORMAL [None]
